FAERS Safety Report 10051729 (Version 2)
Quarter: 2014Q2

REPORT INFORMATION
  Report Type: Spontaneous
  Country: DK (occurrence: DK)
  Receive Date: 20140401
  Receipt Date: 20140409
  Transmission Date: 20141212
  Serious: Yes (Hospitalization)
  Sender: FDA-Public Use
  Company Number: PHHY2014DK035365

PATIENT
  Age: 40 Year
  Sex: Female

DRUGS (1)
  1. NOVYNETTE [Suspect]
     Indication: CONTRACEPTION
     Route: 048
     Dates: start: 2010, end: 2011

REACTIONS (9)
  - Syncope [Recovered/Resolved]
  - Dyspnoea exertional [Recovered/Resolved]
  - Paraesthesia [Unknown]
  - Fatigue [Unknown]
  - Pain in extremity [Unknown]
  - Oedema peripheral [Unknown]
  - Pulmonary embolism [Recovered/Resolved]
  - Head discomfort [Unknown]
  - Hypercoagulation [Unknown]
